FAERS Safety Report 8975082 (Version 3)
Quarter: 2013Q1

REPORT INFORMATION
  Report Type: Spontaneous
  Country: JP (occurrence: JP)
  Receive Date: 20121219
  Receipt Date: 20130130
  Transmission Date: 20140127
  Serious: Yes (Hospitalization)
  Sender: FDA-Public Use
  Company Number: PHHY2012JP115908

PATIENT
  Age: 69 Year
  Sex: Male
  Weight: 64 kg

DRUGS (5)
  1. LOCHOL [Suspect]
     Indication: HYPERLIPIDAEMIA
     Dosage: 20 MG, DAILY
     Route: 048
     Dates: end: 20121113
  2. DIOVAN [Suspect]
     Indication: HYPERTENSION
     Dosage: 20 MG, DAILY
     Route: 048
     Dates: end: 20121130
  3. EPADEL [Suspect]
     Indication: HYPERLIPIDAEMIA
     Dosage: 900 MG, DAILY
     Route: 048
     Dates: end: 20121113
  4. BAYASPIRIN [Concomitant]
  5. ACINON [Concomitant]

REACTIONS (2)
  - Hepatitis acute [Recovering/Resolving]
  - Abdominal pain upper [Unknown]
